FAERS Safety Report 5397534-2 (Version None)
Quarter: 2007Q3

REPORT INFORMATION
  Report Type: 
  Country: None (occurrence: None)
  Receive Date: 20070726
  Receipt Date: 20070719
  Transmission Date: 20080115
  Serious: Yes (Other)
  Sender: FDA-Public Use
  Company Number: JP-JNJFOC-20070702403

PATIENT
  Sex: Female
  Weight: 47 kg

DRUGS (3)
  1. MICONAZOLE [Suspect]
     Route: 042
  2. MICONAZOLE [Suspect]
     Indication: CANDIDIASIS
     Route: 042
  3. FERRIC OXIDE SACCHARATED [Concomitant]
     Indication: IRON DEFICIENCY ANAEMIA
     Route: 042

REACTIONS (2)
  - PHLEBITIS [None]
  - WRONG TECHNIQUE IN DRUG USAGE PROCESS [None]
